FAERS Safety Report 10625441 (Version 5)
Quarter: 2015Q1

REPORT INFORMATION
  Report Type: Spontaneous
  Country: DE (occurrence: DE)
  Receive Date: 20141204
  Receipt Date: 20150313
  Transmission Date: 20150720
  Serious: Yes (Other)
  Sender: FDA-Public Use
  Company Number: DE-BRISTOL-MYERS SQUIBB COMPANY-21675319

PATIENT
  Age: 37 Year

DRUGS (11)
  1. LORZAAR [Concomitant]
     Active Substance: LOSARTAN
     Indication: HYPERTENSION
     Route: 065
  2. DARBEPOETIN ALFA [Concomitant]
     Active Substance: DARBEPOETIN ALFA
     Indication: PRODUCT USED FOR UNKNOWN INDICATION
     Route: 065
  3. AMLODIPINE [Concomitant]
     Active Substance: AMLODIPINE BESYLATE
     Indication: HYPERTENSION
     Route: 065
  4. ENALAPRIL [Concomitant]
     Active Substance: ENALAPRIL
     Indication: HYPERTENSION
     Route: 065
  5. LOCOL [Concomitant]
     Active Substance: FLUVASTATIN SODIUM
     Indication: BLOOD CHOLESTEROL INCREASED
     Route: 065
  6. SODIUM BICARBONATE. [Concomitant]
     Active Substance: SODIUM BICARBONATE
     Indication: RENAL FAILURE
     Route: 065
  7. ARANESP [Concomitant]
     Active Substance: DARBEPOETIN ALFA
     Indication: NEPHROGENIC ANAEMIA
     Route: 065
  8. NULOJIX [Suspect]
     Active Substance: BELATACEPT
     Indication: PROPHYLAXIS AGAINST TRANSPLANT REJECTION
     Dosage: 250 MG, QMO
     Route: 041
  9. MYFORTIC [Concomitant]
     Active Substance: MYCOPHENOLATE SODIUM
     Indication: PROPHYLAXIS AGAINST TRANSPLANT REJECTION
     Dosage: 360 MG, BID
     Route: 048
  10. BISOPROLOL [Concomitant]
     Active Substance: BISOPROLOL
     Indication: HYPERTENSION
     Route: 065
  11. OMEPRAZOL E [Concomitant]
     Active Substance: OMEPRAZOLE
     Indication: GASTRITIS PROPHYLAXIS
     Route: 065

REACTIONS (2)
  - Abortion induced [Unknown]
  - Exposure via father [Unknown]
